FAERS Safety Report 20430315 (Version 1)
Quarter: 2022Q1

REPORT INFORMATION
  Report Type: Report from Study
  Country: FR (occurrence: FR)
  Receive Date: 20220204
  Receipt Date: 20220204
  Transmission Date: 20220423
  Serious: Yes (Hospitalization, Other)
  Sender: FDA-Public Use
  Company Number: FR-SERVIER-S20005852

PATIENT

DRUGS (8)
  1. PEGASPARGASE [Suspect]
     Active Substance: PEGASPARGASE
     Indication: Acute lymphocytic leukaemia
     Dosage: 2700 IU, QD ON D6
     Route: 042
     Dates: start: 20200531, end: 20200531
  2. ETOPOSIDE [Concomitant]
     Active Substance: ETOPOSIDE
     Indication: Acute lymphocytic leukaemia
     Dosage: 164 MG, ON D3, D4
     Route: 042
     Dates: start: 20200528, end: 20200529
  3. CYANOCOBALAMIN\PYRIDOXAMINE HYDROCHLORIDE\THIAMINE HYDROCHLORIDE [Concomitant]
     Active Substance: CYANOCOBALAMIN\PYRIDOXAMINE HYDROCHLORIDE\THIAMINE HYDROCHLORIDE
     Indication: Acute lymphocytic leukaemia
     Dosage: 8.8 MG, D3,D4
     Route: 042
     Dates: start: 20200528, end: 20200529
  4. TN UNSPECIFIED [Concomitant]
     Indication: Acute lymphocytic leukaemia
     Dosage: 2200 MG, D1,D2
     Route: 042
     Dates: start: 20200526, end: 20200528
  5. TN UNSPECIFIED [Concomitant]
     Dosage: 30 MG, D5
     Route: 037
     Dates: start: 20200530, end: 20200530
  6. TN UNSPECIFIED [Concomitant]
     Indication: Acute lymphocytic leukaemia
     Dosage: 15 MG ON D5
     Route: 037
     Dates: start: 20200530
  7. TN UNSPECIFIED [Concomitant]
     Indication: Acute lymphocytic leukaemia
     Dosage: 15 MG ON D5
     Route: 037
     Dates: start: 20200530
  8. TN UNSPECIFIED [Concomitant]
     Indication: Acute lymphocytic leukaemia
     Dosage: 21 MG,FROM D1 TO D6
     Route: 048
     Dates: start: 20200527, end: 20200531

REACTIONS (3)
  - Cholestasis [Recovered/Resolved]
  - Hepatic cytolysis [Recovered/Resolved]
  - Staphylococcal sepsis [Recovered/Resolved]

NARRATIVE: CASE EVENT DATE: 20200531
